FAERS Safety Report 8454058 (Version 3)
Quarter: 2012Q4

REPORT INFORMATION
  Report Type: 
  Country: US (occurrence: US)
  Receive Date: 20120312
  Receipt Date: 20120927
  Transmission Date: 20130627
  Serious: Yes (Hospitalization)
  Sender: FDA-Public Use
  Company Number: US-BAYER-2012-023442

PATIENT
  Age: 20 Year
  Sex: Female
  Weight: 58.96 kg

DRUGS (4)
  1. YAZ [Suspect]
     Dosage: UNK
     Dates: start: 20080521, end: 200806
  2. YASMIN [Suspect]
  3. TRAMADOL HYDROCHLORIDE [Concomitant]
     Dosage: 50 mg, UNK
  4. SKELAXIN [Concomitant]
     Dosage: 800 mg, UNK

REACTIONS (10)
  - Deep vein thrombosis [None]
  - Injury [None]
  - Pain [None]
  - General physical health deterioration [None]
  - Anxiety [None]
  - Emotional distress [None]
  - Anhedonia [None]
  - Pain in extremity [None]
  - Vasodilatation [None]
  - Anxiety [None]
